FAERS Safety Report 9350308 (Version 1)
Quarter: 2013Q2

REPORT INFORMATION
  Report Type: Spontaneous
  Country: US (occurrence: US)
  Receive Date: 20130617
  Receipt Date: 20130617
  Transmission Date: 20140414
  Serious: No
  Sender: FDA-Public Use
  Company Number: US-JNJFOC-20130602193

PATIENT
  Sex: Female
  Weight: 93.9 kg

DRUGS (10)
  1. DURAGESIC [Suspect]
     Indication: BACK PAIN
     Route: 062
     Dates: start: 2007
  2. BACLOFEN [Concomitant]
     Indication: MUSCLE SPASMS
     Route: 065
  3. LORTAB [Concomitant]
     Indication: ARTHRALGIA
     Route: 048
     Dates: start: 2007
  4. LORTAB [Concomitant]
     Indication: BACK PAIN
     Route: 048
     Dates: start: 2007
  5. LISINOPRIL [Concomitant]
     Indication: HYPERTENSION
     Route: 048
  6. NEXIUM [Concomitant]
     Indication: GASTROOESOPHAGEAL REFLUX DISEASE
     Route: 048
     Dates: start: 2008
  7. ZANTAC [Concomitant]
     Indication: GASTROOESOPHAGEAL REFLUX DISEASE
     Route: 048
     Dates: start: 2008
  8. REGLAN [Concomitant]
     Indication: GASTROOESOPHAGEAL REFLUX DISEASE
     Route: 065
     Dates: start: 2008
  9. METFORMIN [Concomitant]
     Indication: DIABETES MELLITUS
     Route: 048
     Dates: start: 2011
  10. LIDODERM [Concomitant]
     Indication: PAIN
     Route: 065
     Dates: start: 2007

REACTIONS (4)
  - Drug withdrawal syndrome [Recovered/Resolved]
  - Incorrect drug administration duration [Recovered/Resolved]
  - Product quality issue [Unknown]
  - Product quality issue [Unknown]
